FAERS Safety Report 23226241 (Version 2)
Quarter: 2024Q1

REPORT INFORMATION
  Report Type: Spontaneous
  Country: HU (occurrence: HU)
  Receive Date: 20231124
  Receipt Date: 20240312
  Transmission Date: 20240409
  Serious: Yes (Hospitalization, Other)
  Sender: FDA-Public Use
  Company Number: HU-NOVPHSZ-PHHY2018HU010019

PATIENT
  Age: 49 Year
  Sex: Female

DRUGS (3)
  1. AZATHIOPRINE [Suspect]
     Active Substance: AZATHIOPRINE
     Indication: Product used for unknown indication
     Dosage: UNK
     Route: 065
  2. IMURAN [Suspect]
     Active Substance: AZATHIOPRINE
     Indication: Product used for unknown indication
     Route: 065
     Dates: end: 201506
  3. MONTELUKAST SODIUM [Suspect]
     Active Substance: MONTELUKAST SODIUM
     Indication: Product used for unknown indication
     Dosage: UNK
     Route: 065
     Dates: end: 201506

REACTIONS (11)
  - Eosinophilic granulomatosis with polyangiitis [Recovered/Resolved]
  - Pulmonary mass [Recovering/Resolving]
  - C-reactive protein increased [Recovering/Resolving]
  - Eosinophil count increased [Recovering/Resolving]
  - Papule [Recovering/Resolving]
  - Oedema peripheral [Recovering/Resolving]
  - Antineutrophil cytoplasmic antibody positive [Recovering/Resolving]
  - Lung infiltration [Unknown]
  - Skin lesion [Unknown]
  - Muscle contractions involuntary [Recovering/Resolving]
  - Cholelithiasis [Recovering/Resolving]

NARRATIVE: CASE EVENT DATE: 20150601
